FAERS Safety Report 7007276-5 (Version None)
Quarter: 2010Q3

REPORT INFORMATION
  Report Type: 
  Country: None (occurrence: None)
  Receive Date: 20100922
  Receipt Date: 20100913
  Transmission Date: 20110219
  Serious: Yes (Hospitalization, Other)
  Sender: FDA-Public Use
  Company Number: PHHY2010CA22803

PATIENT
  Sex: Male

DRUGS (1)
  1. ZOMETA [Suspect]
     Indication: PROSTATE CANCER
     Dosage: 4 MG, EVERY FOUR WEEKS
     Route: 042
     Dates: start: 20100317

REACTIONS (4)
  - ARTHRALGIA [None]
  - BLOOD CREATININE DECREASED [None]
  - ERYTHEMA [None]
  - OEDEMA PERIPHERAL [None]
